FAERS Safety Report 7734018-8 (Version None)
Quarter: 2011Q3

REPORT INFORMATION
  Report Type: 
  Country: None (occurrence: None)
  Receive Date: 20110907
  Receipt Date: 20110730
  Transmission Date: 20111222
  Serious: No
  Sender: FDA-Public Use
  Company Number: US-BAYER-2011-070705

PATIENT
  Sex: Male

DRUGS (5)
  1. ALEVE (CAPLET) [Suspect]
     Dosage: UNK
     Route: 048
  2. IBUPROFEN (ADVIL) [Suspect]
     Route: 048
  3. ACETYLSALICYLIC ACID SRT [Suspect]
     Dosage: UNK
     Route: 048
  4. BENADRYL [Suspect]
     Route: 048
  5. ACETAMINOPHEN [Suspect]
     Dosage: UNK
     Route: 048

REACTIONS (1)
  - NO ADVERSE EVENT [None]
